FAERS Safety Report 9831582 (Version 1)
Quarter: 2014Q1

REPORT INFORMATION
  Report Type: Spontaneous
  Country: CN (occurrence: CN)
  Receive Date: 20140121
  Receipt Date: 20140121
  Transmission Date: 20141002
  Serious: No
  Sender: FDA-Public Use
  Company Number: CN-JNJFOC-20140108600

PATIENT
  Age: 61 Year
  Sex: Female

DRUGS (2)
  1. DUROGESIC D-TRANS [Suspect]
     Indication: CANCER PAIN
     Dosage: 4.2 MG X 5
     Route: 062
  2. MORPHINE [Concomitant]
     Indication: PRODUCT USED FOR UNKNOWN INDICATION
     Dosage: 2-3 TIMES PER DAY
     Route: 048

REACTIONS (5)
  - Dizziness [Recovered/Resolved]
  - Nausea [Recovered/Resolved]
  - Hypokinesia [Recovered/Resolved]
  - Inadequate analgesia [Unknown]
  - Wrong technique in drug usage process [Unknown]
